FAERS Safety Report 11968831 (Version 1)
Quarter: 2016Q1

REPORT INFORMATION
  Report Type: Spontaneous
  Country: DE (occurrence: DE)
  Receive Date: 20160128
  Receipt Date: 20160128
  Transmission Date: 20160526
  Serious: Yes (Hospitalization)
  Sender: FDA-Public Use
  Company Number: DE-AUROBINDO-AUR-APL-2016-00384

PATIENT
  Age: 85 Year
  Sex: Female
  Weight: 70 kg

DRUGS (1)
  1. VALSARTAN+HYDROCHLOROTHIAZIDE 160/12.5MG [Suspect]
     Active Substance: HYDROCHLOROTHIAZIDE\VALSARTAN
     Indication: HYPERTENSION
     Dosage: UNK
     Route: 048
     Dates: end: 20151130

REACTIONS (4)
  - Diarrhoea [Recovering/Resolving]
  - Hyponatraemia [Recovering/Resolving]
  - Disturbance in attention [Recovering/Resolving]
  - Vomiting [Recovering/Resolving]

NARRATIVE: CASE EVENT DATE: 20151130
